FAERS Safety Report 6596475-2 (Version None)
Quarter: 2010Q1

REPORT INFORMATION
  Report Type: 
  Country: None (occurrence: None)
  Receive Date: 20100222
  Receipt Date: 20100222
  Transmission Date: 20100710
  Serious: Yes (Hospitalization)
  Sender: FDA-Public Use
  Company Number: None

PATIENT
  Age: 59 Year
  Sex: Male

DRUGS (2)
  1. ATENOLOL [Suspect]
     Indication: CORONARY ARTERIAL STENT INSERTION
     Dosage: 2G MG
     Dates: start: 20090811, end: 20091028
  2. ATENOLOL [Suspect]
     Indication: HYPERTENSION
     Dosage: 2G MG
     Dates: start: 20090811, end: 20091028

REACTIONS (2)
  - BRADYCARDIA [None]
  - HYPOTENSION [None]
